FAERS Safety Report 9580581 (Version 1)
Quarter: 2013Q3

REPORT INFORMATION
  Report Type: Spontaneous
  Country: US (occurrence: None)
  Receive Date: 20130916
  Receipt Date: 20130916
  Transmission Date: 20140515
  Serious: Yes (Other)
  Sender: FDA-Public Use
  Company Number: JPI-P-030384

PATIENT
  Age: 25 Year
  Sex: Female

DRUGS (1)
  1. XYREM [Suspect]
     Indication: SLEEP DISORDER
     Dosage: 4 GM (2 GM, 2 IN 1 D)
     Route: 048
     Dates: start: 20130121, end: 2013

REACTIONS (2)
  - Depression suicidal [None]
  - Malaise [None]
